FAERS Safety Report 7548889-1 (Version None)
Quarter: 2011Q2

REPORT INFORMATION
  Report Type: 
  Country: None (occurrence: None)
  Receive Date: 20110615
  Receipt Date: 20110531
  Transmission Date: 20111010
  Serious: No
  Sender: FDA-Public Use
  Company Number: US-B.I. PHARMACEUTICALS,INC./RIDGEFIELD-2011-BP-03922BP

PATIENT
  Sex: Male

DRUGS (6)
  1. ATENOLOL [Concomitant]
  2. CATAPRES [Concomitant]
     Dosage: 2 MG
  3. ALLOPURINOL [Concomitant]
  4. SPIRIVA [Suspect]
     Indication: CHRONIC OBSTRUCTIVE PULMONARY DISEASE
     Dosage: 18 MCG
     Route: 055
  5. LOVAZA [Concomitant]
  6. FLUTICASONE PROPIONATE [Concomitant]
     Dosage: 100 MG

REACTIONS (1)
  - DYSPNOEA [None]
